FAERS Safety Report 24437083 (Version 1)
Quarter: 2024Q4

REPORT INFORMATION
  Report Type: Spontaneous
  Country: AE (occurrence: AE)
  Receive Date: 20241015
  Receipt Date: 20241015
  Transmission Date: 20250114
  Serious: Yes (Hospitalization, Other)
  Sender: PFIZER
  Company Number: AE-PFIZER INC-PV202400132214

PATIENT
  Age: 39 Year
  Sex: Male

DRUGS (2)
  1. LORBRENA [Suspect]
     Active Substance: LORLATINIB
     Indication: Non-small cell lung cancer
     Dosage: 100 MG, ONCE DAILY
     Route: 048
     Dates: start: 202211, end: 20240717
  2. JANUMET [Concomitant]
     Active Substance: METFORMIN HYDROCHLORIDE\SITAGLIPTIN PHOSPHATE
     Indication: Diabetes mellitus
     Dosage: 1000 MG, 1X/DAY

REACTIONS (3)
  - Diabetes mellitus [Unknown]
  - Chest pain [Recovering/Resolving]
  - Pancreas infection [Recovering/Resolving]
